FAERS Safety Report 4553912-2 (Version None)
Quarter: 2005Q1

REPORT INFORMATION
  Report Type: 
  Country: None (occurrence: None)
  Receive Date: 20050113
  Receipt Date: 20050113
  Transmission Date: 20050727
  Serious: Yes (Life-Threatening, Hospitalization)
  Sender: FDA-Public Use
  Company Number: None

PATIENT
  Age: 28 Year
  Sex: Female
  Weight: 62.1428 kg

DRUGS (1)
  1. ORTHO EVRA [Suspect]
     Dosage: TRANSDERMAL 1 PATCH WEEK
     Route: 062
     Dates: start: 20040701, end: 20040901

REACTIONS (2)
  - PULMONARY EMBOLISM [None]
  - PULMONARY HYPERTENSION [None]
